FAERS Safety Report 26216553 (Version 1)
Quarter: 2025Q4

REPORT INFORMATION
  Report Type: Spontaneous
  Country: CN (occurrence: CN)
  Receive Date: 20251231
  Receipt Date: 20251231
  Transmission Date: 20260119
  Serious: Yes (Other)
  Sender: CHEPLAPHARM
  Company Number: CN-CHEPLA-2025014545

PATIENT
  Age: 18 Year
  Sex: Male
  Weight: 89.5 kg

DRUGS (4)
  1. OLANZAPINE [Suspect]
     Active Substance: OLANZAPINE
     Indication: Schizophrenia
     Dosage: 20 MG PER DAY?DAILY DOSE: 20 MILLIGRAM
     Route: 048
     Dates: start: 202512
  2. OLANZAPINE [Suspect]
     Active Substance: OLANZAPINE
     Indication: Psychotic disorder
     Dosage: 20 MG PER DAY?DAILY DOSE: 20 MILLIGRAM
     Route: 048
     Dates: start: 202512
  3. OLANZAPINE [Suspect]
     Active Substance: OLANZAPINE
     Indication: Schizophrenia
     Dosage: 40 MG PER DAY?DAILY DOSE: 40 MILLIGRAM
     Route: 048
     Dates: start: 20251201, end: 20251212
  4. OLANZAPINE [Suspect]
     Active Substance: OLANZAPINE
     Indication: Psychotic disorder
     Dosage: 40 MG PER DAY?DAILY DOSE: 40 MILLIGRAM
     Route: 048
     Dates: start: 20251201, end: 20251212

REACTIONS (1)
  - Electrocardiogram QT prolonged [Recovering/Resolving]

NARRATIVE: CASE EVENT DATE: 20251212
